FAERS Safety Report 14519032 (Version 1)
Quarter: 2018Q1

REPORT INFORMATION
  Report Type: Spontaneous
  Country: US (occurrence: US)
  Receive Date: 20180209
  Receipt Date: 20180209
  Transmission Date: 20180509
  Serious: Yes (Other)
  Sender: FDA-Public Use
  Company Number: None

PATIENT
  Sex: Female
  Weight: 85.5 kg

DRUGS (5)
  1. SUBOXONE [Suspect]
     Active Substance: BUPRENORPHINE HYDROCHLORIDE\NALOXONE HYDROCHLORIDE
     Indication: DRUG DEPENDENCE
     Dosage: ?          QUANTITY:1 TABLET(S);?
     Route: 060
  2. GABAPENTIN. [Concomitant]
     Active Substance: GABAPENTIN
  3. BUPROPION. [Concomitant]
     Active Substance: BUPROPION
  4. IBUPROFEN. [Concomitant]
     Active Substance: IBUPROFEN
  5. DAILY MULTI-VITAMIN [Concomitant]
     Active Substance: VITAMINS

REACTIONS (8)
  - Pharyngeal oedema [None]
  - Swollen tongue [None]
  - Loss of personal independence in daily activities [None]
  - Urticaria [None]
  - Dysphagia [None]
  - Choking [None]
  - Hypersensitivity [None]
  - Rash pruritic [None]

NARRATIVE: CASE EVENT DATE: 20150401
